FAERS Safety Report 5411107-4 (Version None)
Quarter: 2007Q3

REPORT INFORMATION
  Report Type: 
  Country: None (occurrence: None)
  Receive Date: 20070713
  Receipt Date: 20070419
  Transmission Date: 20080115
  Serious: No
  Sender: FDA-Public Use
  Company Number: 2007SP001420

PATIENT
  Age: 66 Year
  Sex: Female
  Weight: 63.5036 kg

DRUGS (3)
  1. LUNESTA [Suspect]
     Indication: INITIAL INSOMNIA
     Dosage: 3 MG;HS;ORAL ; 3 MG;1X;ORAL
     Route: 048
     Dates: start: 20070418, end: 20070418
  2. LUNESTA [Suspect]
     Indication: INITIAL INSOMNIA
     Dosage: 3 MG;HS;ORAL ; 3 MG;1X;ORAL
     Route: 048
     Dates: start: 20070418
  3. ANTIHYPERTENSIVES [Concomitant]

REACTIONS (2)
  - DRUG INEFFECTIVE [None]
  - INSOMNIA [None]
